FAERS Safety Report 10046058 (Version 1)
Quarter: 2014Q1

REPORT INFORMATION
  Report Type: Report from Study
  Country: CN (occurrence: CN)
  Receive Date: 20140331
  Receipt Date: 20140331
  Transmission Date: 20141002
  Serious: Yes (Hospitalization)
  Sender: FDA-Public Use
  Company Number: CN-ROCHE-1371266

PATIENT
  Sex: Female
  Weight: 53 kg

DRUGS (2)
  1. CELLCEPT [Suspect]
     Indication: SJOGREN^S SYNDROME
     Dosage: 1G PER DAY
     Route: 048
     Dates: start: 20131118
  2. CELLCEPT [Suspect]
     Indication: SYSTEMIC SCLEROSIS
     Dosage: 0.5G PER DAY
     Route: 048

REACTIONS (5)
  - Cough [Not Recovered/Not Resolved]
  - Rhinorrhoea [Not Recovered/Not Resolved]
  - Lung infection [Not Recovered/Not Resolved]
  - Night sweats [Not Recovered/Not Resolved]
  - Off label use [Unknown]
